FAERS Safety Report 18659257 (Version 2)
Quarter: 2020Q4

REPORT INFORMATION
  Report Type: Spontaneous
  Country: US (occurrence: US)
  Receive Date: 20201224
  Receipt Date: 20201225
  Transmission Date: 20210114
  Serious: Yes (Other)
  Sender: FDA-Public Use
  Company Number: NVSC2020US332694

PATIENT
  Sex: Male

DRUGS (1)
  1. XIIDRA [Suspect]
     Active Substance: LIFITEGRAST
     Indication: DRY EYE
     Dosage: UNK (SOLUTION)
     Route: 065

REACTIONS (5)
  - Dry eye [Unknown]
  - Suspected COVID-19 [Unknown]
  - Product packaging issue [Unknown]
  - Product quality issue [Unknown]
  - Eye discharge [Unknown]
